FAERS Safety Report 6190540-X (Version None)
Quarter: 2009Q2

REPORT INFORMATION
  Report Type: 
  Country: None (occurrence: None)
  Receive Date: 20090514
  Receipt Date: 20090508
  Transmission Date: 20091009
  Serious: Yes (Other)
  Sender: FDA-Public Use
  Company Number: BR-ASTRAZENECA-2009UW12176

PATIENT
  Age: 66 Year
  Sex: Female
  Weight: 86 kg

DRUGS (4)
  1. CRESTOR [Suspect]
     Route: 048
  2. CILOSTAZOL [Concomitant]
     Indication: CORONARY ARTERY INSUFFICIENCY
     Route: 048
  3. AMLODIPINE [Concomitant]
     Indication: HYPERTENSION
  4. ATENOLOL [Concomitant]
     Indication: HYPERTENSION
     Route: 048

REACTIONS (3)
  - ALANINE AMINOTRANSFERASE INCREASED [None]
  - ASPARTATE AMINOTRANSFERASE INCREASED [None]
  - BLOOD AMYLASE INCREASED [None]
